FAERS Safety Report 9010717 (Version 2)
Quarter: 2013Q1

REPORT INFORMATION
  Report Type: Spontaneous
  Country: IT (occurrence: IT)
  Receive Date: 20130109
  Receipt Date: 20130315
  Transmission Date: 20140127
  Serious: Yes (Life-Threatening)
  Sender: FDA-Public Use
  Company Number: IT-BAYER-2013-002512

PATIENT
  Age: 31 Year
  Sex: Female

DRUGS (1)
  1. CIPROXIN [Suspect]
     Dosage: 1 DF, ONCE
     Route: 048
     Dates: start: 20120620, end: 20120620

REACTIONS (2)
  - Anaphylactic reaction [Recovering/Resolving]
  - Erythema [Recovering/Resolving]
